FAERS Safety Report 8583986-3 (Version None)
Quarter: 2012Q3

REPORT INFORMATION
  Report Type: 
  Country: None (occurrence: None)
  Receive Date: 20120810
  Receipt Date: 20120803
  Transmission Date: 20120928
  Serious: Yes (Hospitalization, Other)
  Sender: FDA-Public Use
  Company Number: US-009507513-2009SP021070

PATIENT

DRUGS (3)
  1. NUVARING [Suspect]
     Indication: CONTRACEPTION
     Dates: start: 20050525, end: 20060501
  2. AMITRIPTYLINE HCL [Concomitant]
     Indication: PAIN IN EXTREMITY
     Dosage: 25 MG, HS
     Route: 048
  3. NEURONTIN [Concomitant]
     Indication: PAIN IN EXTREMITY
     Dosage: 800 MG, TID
     Route: 048

REACTIONS (14)
  - CEREBRAL CYST [None]
  - ARTERIAL THROMBOSIS LIMB [None]
  - ANXIETY [None]
  - VULVAL DISORDER [None]
  - DEEP VEIN THROMBOSIS [None]
  - PERIPHERAL VASCULAR DISORDER [None]
  - CHEST PAIN [None]
  - DYSPNOEA [None]
  - ABORTION SPONTANEOUS [None]
  - CHOLECYSTITIS [None]
  - MULTIPLE SCLEROSIS [None]
  - ACUTE MYOCARDIAL INFARCTION [None]
  - ANTIPHOSPHOLIPID SYNDROME [None]
  - CORONARY ARTERY DISEASE [None]
